FAERS Safety Report 15923640 (Version 1)
Quarter: 2019Q1

REPORT INFORMATION
  Report Type: Spontaneous
  Country: FR (occurrence: FR)
  Receive Date: 20190206
  Receipt Date: 20190206
  Transmission Date: 20190417
  Serious: Yes (Hospitalization)
  Sender: FDA-Public Use
  Company Number: FR-AMGEN-FRASP2019016011

PATIENT
  Age: 43 Year
  Sex: Male
  Weight: 65 kg

DRUGS (17)
  1. NEUPOGEN [Suspect]
     Active Substance: FILGRASTIM
     Dosage: 30 MILLION IU, QD
     Route: 058
     Dates: start: 20060919, end: 20060924
  2. EPIVIR [Concomitant]
     Active Substance: LAMIVUDINE
     Indication: HIV INFECTION
     Dosage: 150 MG, QD
     Route: 048
  3. NEORECORMON [Concomitant]
     Active Substance: ERYTHROPOIETIN
     Dosage: 3000 IU, QWK
  4. NEUPOGEN [Suspect]
     Active Substance: FILGRASTIM
     Dosage: 30 MILLION IU, QD
     Route: 058
     Dates: start: 20060928, end: 20061001
  5. MYAMBUTOL [Concomitant]
     Active Substance: ETHAMBUTOL HYDROCHLORIDE
     Indication: MYCOBACTERIAL INFECTION
     Dosage: 600 MG, QD
     Route: 048
     Dates: start: 200603
  6. PERFALGAN [Concomitant]
     Active Substance: ACETAMINOPHEN
     Dosage: 1 G, QD
     Route: 042
     Dates: start: 20060922, end: 20061005
  7. NORVIR [Concomitant]
     Active Substance: RITONAVIR
     Indication: HIV INFECTION
     Dosage: 200 MG, QD
     Route: 048
  8. TMC114 [Concomitant]
     Active Substance: DARUNAVIR
     Indication: HIV INFECTION
     Dosage: UNK
  9. ZIAGEN [Concomitant]
     Active Substance: ABACAVIR SULFATE
     Dosage: 600 MG, QD
     Route: 048
  10. BACTRIM [Concomitant]
     Active Substance: SULFAMETHOXAZOLE\TRIMETHOPRIM
     Dosage: 1 KBQ, QD
     Route: 048
     Dates: start: 200509
  11. NEUPOGEN [Suspect]
     Active Substance: FILGRASTIM
     Indication: PRODUCT USED FOR UNKNOWN INDICATION
     Dosage: 30 MILLION IU, UNK
     Route: 058
  12. NEUPOGEN [Suspect]
     Active Substance: FILGRASTIM
     Dosage: 30 MILLION IU, QD
     Route: 058
     Dates: start: 20060913, end: 20060916
  13. DAUNOXOME [Suspect]
     Active Substance: DAUNORUBICIN CITRATE
     Indication: KAPOSI^S SARCOMA
     Dosage: 100 MG, QD
     Route: 042
     Dates: start: 20060913, end: 20061013
  14. RIMIFON [Concomitant]
     Active Substance: ISONIAZID
     Indication: MYCOBACTERIAL INFECTION
     Dosage: 200 MG, QD
     Route: 048
     Dates: start: 200603
  15. NOXAFIL [Concomitant]
     Active Substance: POSACONAZOLE
     Dosage: 10 ML, QD
     Route: 048
     Dates: start: 200509
  16. ZELITREX [Concomitant]
     Active Substance: VALACYCLOVIR HYDROCHLORIDE
     Dosage: 3 G, QD
     Route: 048
     Dates: start: 20060914, end: 20061016
  17. IZILOX [Concomitant]
     Active Substance: MOXIFLOXACIN HYDROCHLORIDE
     Indication: MYCOBACTERIAL INFECTION
     Dosage: 400 MG, QD
     Route: 048
     Dates: start: 200603

REACTIONS (4)
  - Genital herpes [Unknown]
  - Gamma-glutamyltransferase increased [Unknown]
  - Pyrexia [Unknown]
  - Blood alkaline phosphatase increased [Unknown]

NARRATIVE: CASE EVENT DATE: 20060914
